FAERS Safety Report 10618563 (Version 1)
Quarter: 2014Q4

REPORT INFORMATION
  Report Type: Spontaneous
  Country: US (occurrence: None)
  Receive Date: 20141125
  Receipt Date: 20141125
  Transmission Date: 20150529
  Serious: Yes (Hospitalization)
  Sender: FDA-Public Use
  Company Number: 20140755

PATIENT
  Age: 57 Year
  Sex: Female

DRUGS (3)
  1. PHENYTOIN SODIUM INJECTION (40042-009-02) 50MG/ML [Suspect]
     Active Substance: PHENYTOIN SODIUM
     Indication: SEIZURE
     Dosage: 8870 MG IN 7 DAY PERIOD
     Route: 042
  2. PHENOBARBITAL. [Suspect]
     Active Substance: PHENOBARBITAL
     Indication: SEIZURE
     Dosage: 3970 MG IN 7 DAY PERIOD
     Route: 042
  3. VALPROIC ACID. [Concomitant]
     Active Substance: VALPROIC ACID

REACTIONS (7)
  - Toxicity to various agents [None]
  - Generalised tonic-clonic seizure [None]
  - Shock [None]
  - Hepatic enzyme increased [None]
  - Lactic acidosis [None]
  - Anion gap increased [None]
  - Metabolic acidosis [None]
